FAERS Safety Report 4490729-1 (Version None)
Quarter: 2004Q4

REPORT INFORMATION
  Report Type: 
  Country: None (occurrence: None)
  Receive Date: 20041026
  Receipt Date: 20041008
  Transmission Date: 20050328
  Serious: Yes (Other)
  Sender: FDA-Public Use
  Company Number: 601583

PATIENT
  Age: 20 Year
  Sex: Male

DRUGS (2)
  1. TISSEEL VH KIT [Suspect]
     Indication: NERVOUS SYSTEM DISORDER
     Dosage: INTERMITTENT
     Dates: start: 20040101, end: 20040101
  2. TISSEEL VH KIT [Suspect]
     Indication: SURGERY
     Dosage: INTERMITTENT
     Dates: start: 20040101, end: 20040101

REACTIONS (5)
  - ACTIVATED PARTIAL THROMBOPLASTIN TIME PROLONGED [None]
  - ANTI-PROTHROMBIN ANTIBODY POSITIVE [None]
  - ANTIPHOSPHOLIPID ANTIBODIES POSITIVE [None]
  - PROTHROMBIN LEVEL DECREASED [None]
  - PROTHROMBIN TIME PROLONGED [None]
